FAERS Safety Report 10646064 (Version 1)
Quarter: 2014Q4

REPORT INFORMATION
  Report Type: Spontaneous
  Country: US (occurrence: US)
  Receive Date: 20141211
  Receipt Date: 20141211
  Transmission Date: 20150529
  Serious: Yes (Other)
  Sender: FDA-Public Use
  Company Number: US-ASTRAZENECA-2014SE94566

PATIENT
  Age: 49 Year
  Sex: Female

DRUGS (3)
  1. SEROQUEL [Suspect]
     Active Substance: QUETIAPINE FUMARATE
     Route: 048
     Dates: start: 20141203
  2. MUSCLE RELAXANT [Suspect]
     Active Substance: UNSPECIFIED INGREDIENT
     Indication: MUSCULOSKELETAL STIFFNESS
     Route: 065
  3. OTHER PSYCH MEDICATIONS [Suspect]
     Active Substance: UNSPECIFIED INGREDIENT
     Indication: MENTAL DISORDER
     Route: 065

REACTIONS (2)
  - Blindness [Unknown]
  - Somnolence [Unknown]

NARRATIVE: CASE EVENT DATE: 20141203
